FAERS Safety Report 7642077-6 (Version None)
Quarter: 2011Q3

REPORT INFORMATION
  Report Type: 
  Country: None (occurrence: None)
  Receive Date: 20110728
  Receipt Date: 20110719
  Transmission Date: 20111222
  Serious: Yes (Other)
  Sender: FDA-Public Use
  Company Number: US-ELI_LILLY_AND_COMPANY-US201107006435

PATIENT
  Age: 68 Year
  Sex: Male
  Weight: 176 kg

DRUGS (4)
  1. HEPARIN [Concomitant]
  2. EFFIENT [Suspect]
     Indication: PERCUTANEOUS CORONARY INTERVENTION
     Dosage: UNK
     Dates: start: 20110706
  3. TNKASE [Concomitant]
  4. REOPRO [Concomitant]
     Indication: PERCUTANEOUS CORONARY INTERVENTION
     Dosage: UNK
     Dates: start: 20110706, end: 20110706

REACTIONS (3)
  - CONFUSIONAL STATE [None]
  - HEADACHE [None]
  - NAUSEA [None]
